FAERS Safety Report 24729375 (Version 10)
Quarter: 2025Q4

REPORT INFORMATION
  Report Type: Spontaneous
  Country: US (occurrence: US)
  Receive Date: 20241213
  Receipt Date: 20251104
  Transmission Date: 20260117
  Serious: Yes (Hospitalization, Other)
  Sender: CSL BEHRING
  Company Number: US-BEH-2024186944

PATIENT
  Age: 80 Year
  Sex: Male

DRUGS (36)
  1. IDELVION [Suspect]
     Active Substance: COAGULATION FACTOR IX RECOMBINANT HUMAN
     Indication: Factor IX deficiency
     Dosage: 2800 UNITS (2520-3080), QW
     Route: 042
     Dates: start: 202409
  2. IDELVION [Suspect]
     Active Substance: COAGULATION FACTOR IX RECOMBINANT HUMAN
     Indication: Factor IX deficiency
     Dosage: 2800 UNITS (2520-3080), QW
     Route: 042
     Dates: start: 202409
  3. IDELVION [Suspect]
     Active Substance: COAGULATION FACTOR IX RECOMBINANT HUMAN
     Indication: Prophylaxis
     Dosage: 5600 UNITS (5040-6160), ONCE
     Route: 042
     Dates: start: 202409
  4. IDELVION [Suspect]
     Active Substance: COAGULATION FACTOR IX RECOMBINANT HUMAN
     Indication: Prophylaxis
     Dosage: 5600 UNITS (5040-6160), ONCE
     Route: 042
     Dates: start: 202409
  5. IDELVION [Suspect]
     Active Substance: COAGULATION FACTOR IX RECOMBINANT HUMAN
     Dosage: 3500 IU, EVERY 5 DAYS (STRENGTH: 2000)
     Route: 042
     Dates: start: 202409
  6. IDELVION [Suspect]
     Active Substance: COAGULATION FACTOR IX RECOMBINANT HUMAN
     Dosage: 3500 IU, EVERY 5 DAYS (STRENGTH: 2000)
     Route: 042
     Dates: start: 202409
  7. IDELVION [Suspect]
     Active Substance: COAGULATION FACTOR IX RECOMBINANT HUMAN
     Dosage: 3500 IU, EVERY 5 DAYS (STRENGTH: 1000)
     Route: 042
     Dates: start: 202409
  8. IDELVION [Suspect]
     Active Substance: COAGULATION FACTOR IX RECOMBINANT HUMAN
     Dosage: 3500 IU, EVERY 5 DAYS (STRENGTH: 1000)
     Route: 042
     Dates: start: 202409
  9. IDELVION [Suspect]
     Active Substance: COAGULATION FACTOR IX RECOMBINANT HUMAN
     Dosage: 3500 IU (3150-3850) EVERY 3 DAYS FOR 3 DOSES, THEN ONCE EVERY 4 DAYS FOR 5 DOSES, THEN ONCE EVERY 5
     Route: 042
     Dates: start: 202409
  10. IDELVION [Suspect]
     Active Substance: COAGULATION FACTOR IX RECOMBINANT HUMAN
     Dosage: 3500 IU (3150-3850) EVERY 3 DAYS FOR 3 DOSES, THEN ONCE EVERY 4 DAYS FOR 5 DOSES, THEN ONCE EVERY 5
     Route: 042
     Dates: start: 202409
  11. IDELVION [Suspect]
     Active Substance: COAGULATION FACTOR IX RECOMBINANT HUMAN
     Dosage: 3500 IU (3150-3850) EVERY 3 DAYS FOR 3 DOSES, THEN ONCE EVERY 4 DAYS FOR 5 DOSES, THEN ONCE EVERY 5
     Route: 042
     Dates: start: 202409
  12. IDELVION [Suspect]
     Active Substance: COAGULATION FACTOR IX RECOMBINANT HUMAN
     Dosage: 3500 IU (3150-3850) EVERY 3 DAYS FOR 3 DOSES, THEN ONCE EVERY 4 DAYS FOR 5 DOSES, THEN ONCE EVERY 5
     Route: 042
     Dates: start: 202409
  13. IDELVION [Suspect]
     Active Substance: COAGULATION FACTOR IX RECOMBINANT HUMAN
     Dosage: 3500 IU, QW (3150-3850)
     Route: 042
     Dates: start: 20250409
  14. IDELVION [Suspect]
     Active Substance: COAGULATION FACTOR IX RECOMBINANT HUMAN
     Dosage: 3500 IU, QW (3150-3850)
     Route: 042
     Dates: start: 20250409
  15. IDELVION [Suspect]
     Active Substance: COAGULATION FACTOR IX RECOMBINANT HUMAN
     Dosage: 3500 IU, QW (3150-3850)
     Route: 042
     Dates: start: 20250409
  16. IDELVION [Suspect]
     Active Substance: COAGULATION FACTOR IX RECOMBINANT HUMAN
     Dosage: 3500 IU, QW (3150-3850)
     Route: 042
     Dates: start: 20250409
  17. IDELVION [Suspect]
     Active Substance: COAGULATION FACTOR IX RECOMBINANT HUMAN
     Dosage: 3500 IU (3150-3850) EVERY 7 DAYS FOR PROPHY
     Route: 042
     Dates: start: 202409
  18. IDELVION [Suspect]
     Active Substance: COAGULATION FACTOR IX RECOMBINANT HUMAN
     Dosage: 3500 IU (3150-3850) EVERY 7 DAYS FOR PROPHY
     Route: 042
     Dates: start: 202409
  19. IDELVION [Suspect]
     Active Substance: COAGULATION FACTOR IX RECOMBINANT HUMAN
     Dosage: 3500 IU
     Route: 042
     Dates: start: 202409
  20. IDELVION [Suspect]
     Active Substance: COAGULATION FACTOR IX RECOMBINANT HUMAN
     Dosage: 3500 IU
     Route: 042
     Dates: start: 202409
  21. IDELVION [Suspect]
     Active Substance: COAGULATION FACTOR IX RECOMBINANT HUMAN
     Dosage: 3500 IU, PRN
     Route: 042
     Dates: start: 202409
  22. IDELVION [Suspect]
     Active Substance: COAGULATION FACTOR IX RECOMBINANT HUMAN
     Dosage: 3500 IU, PRN
     Route: 042
     Dates: start: 202409
  23. IDELVION [Suspect]
     Active Substance: COAGULATION FACTOR IX RECOMBINANT HUMAN
     Dosage: 800 IU, BIW
     Route: 042
     Dates: start: 202409
  24. IDELVION [Suspect]
     Active Substance: COAGULATION FACTOR IX RECOMBINANT HUMAN
     Dosage: 800 IU, BIW
     Route: 042
     Dates: start: 202409
  25. IDELVION [Suspect]
     Active Substance: COAGULATION FACTOR IX RECOMBINANT HUMAN
     Dosage: 2000 IU, BIW
     Route: 042
     Dates: start: 202409
  26. IDELVION [Suspect]
     Active Substance: COAGULATION FACTOR IX RECOMBINANT HUMAN
     Dosage: 2000 IU, BIW
     Route: 042
     Dates: start: 202409
  27. IDELVION [Suspect]
     Active Substance: COAGULATION FACTOR IX RECOMBINANT HUMAN
     Dosage: 2800 UNITS (2520-3080), BIW
     Route: 042
     Dates: start: 202409
  28. IDELVION [Suspect]
     Active Substance: COAGULATION FACTOR IX RECOMBINANT HUMAN
     Dosage: 2800 UNITS (2520-3080), BIW
     Route: 042
     Dates: start: 202409
  29. IDELVION [Suspect]
     Active Substance: COAGULATION FACTOR IX RECOMBINANT HUMAN
     Dosage: 2800 UNITS (2520-3080), ONCE
     Route: 042
     Dates: start: 202409
  30. IDELVION [Suspect]
     Active Substance: COAGULATION FACTOR IX RECOMBINANT HUMAN
     Dosage: 2800 UNITS (2520-3080), ONCE
     Route: 042
     Dates: start: 202409
  31. IDELVION [Suspect]
     Active Substance: COAGULATION FACTOR IX RECOMBINANT HUMAN
     Dosage: 7000 UNITS (6300-7700), FOR MAJOR
     Route: 042
     Dates: start: 202409
  32. IDELVION [Suspect]
     Active Substance: COAGULATION FACTOR IX RECOMBINANT HUMAN
     Dosage: 7000 UNITS (6300-7700), FOR MAJOR
     Route: 042
     Dates: start: 202409
  33. BENEFIX [Concomitant]
     Active Substance: COAGULATION FACTOR IX RECOMBINANT HUMAN\ISOPROPYL ALCOHOL
  34. HEPARIN [Concomitant]
     Active Substance: HEPARIN SODIUM
     Dosage: 5 ML
  35. SODIUM CHLORIDE [Concomitant]
     Active Substance: SODIUM CHLORIDE
     Dosage: 10 ML
  36. HYMPAVZI [Concomitant]
     Active Substance: MARSTACIMAB-HNCQ
     Dosage: PEN

REACTIONS (12)
  - Cerebral haemorrhage [Unknown]
  - Cerebral haemorrhage [Unknown]
  - Cerebral haemorrhage [Unknown]
  - Cerebral haemorrhage [Recovered/Resolved]
  - Cerebral haemorrhage [Unknown]
  - Cerebral haemorrhage [Unknown]
  - Cerebral haemorrhage [Unknown]
  - Dizziness [Unknown]
  - Vision blurred [Unknown]
  - Dizziness [Unknown]
  - Fatigue [Unknown]
  - Dizziness [Unknown]

NARRATIVE: CASE EVENT DATE: 20241130
